FAERS Safety Report 5708133-4 (Version None)
Quarter: 2008Q2

REPORT INFORMATION
  Report Type: 
  Country: None (occurrence: None)
  Receive Date: 20080417
  Receipt Date: 20080411
  Transmission Date: 20081010
  Serious: Yes (Other)
  Sender: FDA-Public Use
  Company Number: A0722363A

PATIENT
  Sex: Female

DRUGS (4)
  1. FLOVENT [Suspect]
     Indication: ASTHMA
     Dosage: 2PUFF TWICE PER DAY
     Route: 055
     Dates: start: 20070101, end: 20070101
  2. FLORATIL [Concomitant]
  3. CLONAZEPAM [Concomitant]
  4. XOPENEX [Concomitant]

REACTIONS (6)
  - ANXIETY [None]
  - BREAST PAIN [None]
  - CARDIAC FLUTTER [None]
  - CHEST DISCOMFORT [None]
  - CHEST PAIN [None]
  - PALPITATIONS [None]
